FAERS Safety Report 8171293-2 (Version None)
Quarter: 2012Q1

REPORT INFORMATION
  Report Type: 
  Country: None (occurrence: None)
  Receive Date: 20120104
  Receipt Date: 20111118
  Transmission Date: 20120608
  Serious: No
  Sender: FDA-Public Use
  Company Number: 2011HGS-002843

PATIENT
  Age: 62 Year
  Sex: Female

DRUGS (7)
  1. MEDROL [Concomitant]
  2. CLONIDINE [Concomitant]
  3. COUMADIN [Concomitant]
  4. PLAQUENIL [Concomitant]
  5. BENLYSTA [Suspect]
     Indication: SYSTEMIC LUPUS ERYTHEMATOSUS
     Dosage: 1 IN 28 D, INTRAVENOUS DRIP
     Route: 041
     Dates: start: 20110830
  6. PROVIGIL [Concomitant]
  7. LORAZEPAM [Concomitant]

REACTIONS (2)
  - DIARRHOEA HAEMORRHAGIC [None]
  - DIARRHOEA [None]
